FAERS Safety Report 6890037 (Version 4)
Quarter: 2012Q4

REPORT INFORMATION
  Report Type: 
  Country: US (occurrence: US)
  Receive Date: 20090123
  Receipt Date: 20120831
  Transmission Date: 20130627
  Serious: Yes (Other)
  Sender: FDA-Public Use
  Company Number: US-PFIZER INC-2009155412

PATIENT
  Age: 52 Year
  Sex: Male
  Weight: 83.9 kg

DRUGS (7)
  1. LIPITOR [Suspect]
     Indication: HYPERCHOLESTEROLAEMIA
     Dosage: 10 mg, 1x/day
     Route: 048
     Dates: start: 20080807
  2. LIPITOR [Suspect]
     Indication: CARDIOMYOPATHY
  3. TRAMADOL HYDROCHLORIDE [Suspect]
     Dosage: UNK
  4. VICODIN [Suspect]
     Dosage: UNK
  5. ZOCOR [Suspect]
     Indication: HYPERCHOLESTEROLAEMIA
     Dosage: UNK
  6. ANDROGEL [Concomitant]
     Dosage: UNK
  7. VIAGRA [Concomitant]
     Dosage: 100 mg, as needed

REACTIONS (9)
  - Paresis [Not Recovered/Not Resolved]
  - Device failure [Unknown]
  - Myopathy [Not Recovered/Not Resolved]
  - Myalgia [Not Recovered/Not Resolved]
  - Fatigue [Not Recovered/Not Resolved]
  - Muscular weakness [Not Recovered/Not Resolved]
  - Constipation [Unknown]
  - Asthenia [Not Recovered/Not Resolved]
  - Gastrointestinal pain [Not Recovered/Not Resolved]
